FAERS Safety Report 5507094-0 (Version None)
Quarter: 2007Q4

REPORT INFORMATION
  Report Type: 
  Country: None (occurrence: None)
  Receive Date: 20071105
  Receipt Date: 20071030
  Transmission Date: 20080405
  Serious: Yes (Hospitalization)
  Sender: FDA-Public Use
  Company Number: US-MERCK-0710USA06965

PATIENT
  Age: 89 Year
  Sex: Male
  Weight: 64 kg

DRUGS (1)
  1. JANUVIA [Suspect]
     Indication: BLOOD GLUCOSE
     Route: 048
     Dates: start: 20070401

REACTIONS (4)
  - ANOREXIA [None]
  - SYNCOPE [None]
  - URINARY TRACT INFECTION [None]
  - WEIGHT DECREASED [None]
